FAERS Safety Report 10485976 (Version 4)
Quarter: 2015Q1

REPORT INFORMATION
  Report Type: Spontaneous
  Country: US (occurrence: None)
  Receive Date: 20140929
  Receipt Date: 20150330
  Transmission Date: 20150720
  Serious: Yes (Hospitalization)
  Sender: FDA-Public Use
  Company Number: US-001270

PATIENT
  Age: 65 Year
  Sex: Female

DRUGS (9)
  1. PROZAC [Concomitant]
     Active Substance: FLUOXETINE HYDROCHLORIDE
  2. LOVENOX [Concomitant]
     Active Substance: ENOXAPARIN SODIUM
  3. GATTEX [Suspect]
     Active Substance: TEDUGLUTIDE\WATER
     Indication: SHORT-BOWEL SYNDROME
     Dosage: 0.15 ML QD, STREN/VOLUM: 0.15 ML|FREQU: ONCE DAILY SUBCUTANEOUS
     Route: 058
     Dates: start: 20130817, end: 20140911
  4. COUMADIN [Concomitant]
     Active Substance: WARFARIN SODIUM
  5. PRAVACOL [Concomitant]
     Active Substance: PRAVASTATIN SODIUM
  6. CIPROFLOXACIN. [Concomitant]
     Active Substance: CIPROFLOXACIN
  7. SOLUTIONS FOR PARENTERAL NUTRITION [Concomitant]
     Active Substance: AMINO ACIDS\DEXTROSE\ELECTROLYTES NOS
  8. MULTIVITAMINS [Concomitant]
     Active Substance: VITAMINS
  9. ZITHROMAX [Concomitant]
     Active Substance: AZITHROMYCIN DIHYDRATE

REACTIONS (10)
  - Abdominal pain [None]
  - Small intestinal obstruction [None]
  - Flatulence [None]
  - Gastric mucosal hypertrophy [None]
  - Overgrowth bacterial [None]
  - Aphagia [None]
  - Vomiting [None]
  - Pain [None]
  - Muscle spasms [None]
  - Feeding disorder [None]

NARRATIVE: CASE EVENT DATE: 201409
